FAERS Safety Report 6152576-4 (Version None)
Quarter: 2009Q2

REPORT INFORMATION
  Report Type: 
  Country: None (occurrence: None)
  Receive Date: 20090413
  Receipt Date: 20090409
  Transmission Date: 20091009
  Serious: Yes (Death, Other)
  Sender: FDA-Public Use
  Company Number: IT-BRISTOL-MYERS SQUIBB COMPANY-14558001

PATIENT
  Age: 77 Year
  Sex: Male

DRUGS (8)
  1. METFORMIN HCL [Suspect]
     Indication: DIABETES MELLITUS
     Dosage: AROUND FIVE YEARS
  2. ERLOTINIB [Suspect]
     Indication: LUNG NEOPLASM MALIGNANT
     Dates: start: 20070802
  3. GLIBENCLAMIDE [Concomitant]
     Dosage: AROUND FIVE YEARS (0800, 1300, 2000H)
  4. REPAGLINIDE [Concomitant]
     Dosage: AROUND FIVE YEARS (0800, 1300,2000H).
  5. DOXAZOSIN MESYLATE [Concomitant]
     Dosage: (2100H).
  6. OMEPRAZOLE [Concomitant]
     Dosage: (0800H).
  7. FUROSEMIDE [Concomitant]
     Dosage: AROUND FIVE YEARS (0800H).
  8. PREDNISONE [Concomitant]
     Dosage: (0800H).

REACTIONS (2)
  - HEPATITIS [None]
  - LACTIC ACIDOSIS [None]
